FAERS Safety Report 5371945-3 (Version None)
Quarter: 2007Q2

REPORT INFORMATION
  Report Type: 
  Country: None (occurrence: None)
  Receive Date: 20070625
  Receipt Date: 20070611
  Transmission Date: 20071010
  Serious: Yes (Death, Other)
  Sender: FDA-Public Use
  Company Number: 100#08#2007-02122

PATIENT
  Sex: Female

DRUGS (2)
  1. NAPROXEN [Suspect]
     Indication: DRUG EXPOSURE DURING PREGNANCY
     Dosage: 1100 MG/DAY TRANSPLACENTAL
     Route: 064
  2. NAPROXEN [Suspect]
     Indication: MYALGIA
     Dosage: 1100 MG/DAY TRANSPLACENTAL
     Route: 064

REACTIONS (20)
  - APGAR SCORE LOW [None]
  - CAESAREAN SECTION [None]
  - CANDIDIASIS [None]
  - CONGENITAL KNEE DEFORMITY [None]
  - DISSEMINATED INTRAVASCULAR COAGULATION [None]
  - DRUG EXPOSURE DURING PREGNANCY [None]
  - FOETAL GROWTH RETARDATION [None]
  - FOETAL MOVEMENTS DECREASED [None]
  - ILEAL PERFORATION [None]
  - ILEITIS [None]
  - INTERCOSTAL RETRACTION [None]
  - JOINT CONTRACTURE [None]
  - NO THERAPEUTIC RESPONSE [None]
  - OLIGOHYDRAMNIOS [None]
  - PERITONEAL DIALYSIS [None]
  - PLACENTAL DISORDER [None]
  - PREMATURE BABY [None]
  - REFUSAL OF TREATMENT BY RELATIVE [None]
  - RENAL APLASIA [None]
  - SEPSIS NEONATAL [None]
